FAERS Safety Report 4965423-0 (Version None)
Quarter: 2006Q2

REPORT INFORMATION
  Report Type: 
  Country: None (occurrence: None)
  Receive Date: 20060406
  Receipt Date: 20050214
  Transmission Date: 20061013
  Serious: Yes (Hospitalization, Other)
  Sender: FDA-Public Use
  Company Number: US-MERCK-0502USA01920

PATIENT
  Age: 71 Year
  Sex: Male
  Weight: 84 kg

DRUGS (1)
  1. VIOXX [Suspect]
     Indication: ARTHRITIS
     Route: 048
     Dates: start: 20040316, end: 20040705

REACTIONS (6)
  - ADVERSE EVENT [None]
  - ASTHENIA [None]
  - CHEST PAIN [None]
  - HYPOAESTHESIA [None]
  - MYOCARDIAL INFARCTION [None]
  - SHOULDER PAIN [None]
